FAERS Safety Report 14417227 (Version 2)
Quarter: 2018Q1

REPORT INFORMATION
  Report Type: Spontaneous
  Country: DE (occurrence: DE)
  Receive Date: 20180122
  Receipt Date: 20180213
  Transmission Date: 20180509
  Serious: Yes (Other)
  Sender: FDA-Public Use
  Company Number: PHHY2018DE008606

PATIENT
  Sex: Male

DRUGS (1)
  1. ENTRESTO [Suspect]
     Active Substance: SACUBITRIL\VALSARTAN
     Indication: CARDIAC FAILURE CHRONIC
     Dosage: 1 DF, BID
     Route: 065
     Dates: start: 201711, end: 201711

REACTIONS (6)
  - Nightmare [Recovered/Resolved]
  - Thrombocytopenia [Recovered/Resolved]
  - Hyperkalaemia [Recovered/Resolved]
  - Hypotension [Recovered/Resolved]
  - Myalgia [Recovered/Resolved]
  - Renal impairment [Recovered/Resolved]
